FAERS Safety Report 17083177 (Version 4)
Quarter: 2020Q2

REPORT INFORMATION
  Report Type: Spontaneous
  Country: RU (occurrence: RU)
  Receive Date: 20191127
  Receipt Date: 20200429
  Transmission Date: 20200713
  Serious: Yes (Death, Hospitalization, Other)
  Sender: FDA-Public Use
  Company Number: NVSC2019RU043677

PATIENT
  Age: 26 Year
  Sex: Female

DRUGS (2)
  1. SECUKINUMAB. [Suspect]
     Active Substance: SECUKINUMAB
     Indication: PRODUCT USED FOR UNKNOWN INDICATION
     Dosage: 300 MG, UNKNOWN
     Route: 058
     Dates: start: 20191022, end: 20191029
  2. AMOKSIKLAV [Suspect]
     Active Substance: AMOXICILLIN\CLAVULANATE POTASSIUM
     Indication: PRODUCT USED FOR UNKNOWN INDICATION
     Dosage: 1000 MG, BID
     Route: 065
     Dates: start: 20191031

REACTIONS (17)
  - Erysipelas [Unknown]
  - Hepatitis [Recovering/Resolving]
  - Sepsis [Recovering/Resolving]
  - Toxicity to various agents [Unknown]
  - Body temperature increased [Fatal]
  - Abscess limb [Recovering/Resolving]
  - Dermal cyst [Unknown]
  - Pneumonia [Fatal]
  - Dyspnoea [Fatal]
  - Hyperaemia [Unknown]
  - Anaemia [Recovering/Resolving]
  - Vomiting [Unknown]
  - Septic shock [Fatal]
  - Nausea [Unknown]
  - Thrombocytopenia [Recovering/Resolving]
  - Leukopenia [Recovering/Resolving]
  - Splenomegaly [Recovering/Resolving]

NARRATIVE: CASE EVENT DATE: 201910
